FAERS Safety Report 6692578-2 (Version None)
Quarter: 2010Q2

REPORT INFORMATION
  Report Type: 
  Country: None (occurrence: None)
  Receive Date: 20100422
  Receipt Date: 20100413
  Transmission Date: 20101027
  Serious: Yes (Disabling, Other)
  Sender: FDA-Public Use
  Company Number: US-PFIZER INC-2010047152

PATIENT
  Sex: Male
  Weight: 84 kg

DRUGS (6)
  1. LIPITOR [Suspect]
     Indication: BLOOD CHOLESTEROL INCREASED
     Dosage: 20 MG, DAILY
     Route: 048
  2. LIPITOR [Suspect]
     Dosage: 40 MG, DAILY
     Route: 048
  3. LIPITOR [Suspect]
     Dosage: 80 MG, DAILY
     Route: 048
  4. VYTORIN [Suspect]
  5. METOPROLOL [Concomitant]
     Indication: CARDIAC DISORDER
     Dosage: 200 MG, DAILY
  6. LISINOPRIL [Concomitant]
     Indication: CARDIAC DISORDER
     Dosage: 20 MG, DAILY

REACTIONS (6)
  - ALANINE AMINOTRANSFERASE INCREASED [None]
  - ASPARTATE AMINOTRANSFERASE INCREASED [None]
  - BLOOD CHOLESTEROL INCREASED [None]
  - DEPRESSION [None]
  - DIABETES MELLITUS [None]
  - MYALGIA [None]
